FAERS Safety Report 4805962-6 (Version None)
Quarter: 2005Q4

REPORT INFORMATION
  Report Type: 
  Country: None (occurrence: None)
  Receive Date: 20051019
  Receipt Date: 20051019
  Transmission Date: 20060501
  Serious: Yes (Hospitalization, Other)
  Sender: FDA-Public Use
  Company Number: None

PATIENT
  Sex: Female
  Weight: 91.7 kg

DRUGS (2)
  1. DAUNORUBICIN [Suspect]
     Indication: ACUTE MYELOID LEUKAEMIA
     Dosage: SEE IMAGE
     Route: 042
     Dates: start: 20050928, end: 20050930
  2. CYTARABINE [Suspect]
     Dosage: SEE IMAGE
     Route: 042
     Dates: start: 20050928, end: 20051004

REACTIONS (14)
  - ATRIAL FIBRILLATION [None]
  - CHEST PAIN [None]
  - ELECTROCARDIOGRAM T WAVE ABNORMAL [None]
  - HAEMODYNAMIC INSTABILITY [None]
  - HYPOTENSION [None]
  - HYPOXIA [None]
  - INFECTION [None]
  - PERICARDIAL EFFUSION [None]
  - PERICARDITIS [None]
  - PULMONARY OEDEMA [None]
  - RESPIRATORY DISTRESS [None]
  - SHOULDER PAIN [None]
  - SINUS TACHYCARDIA [None]
  - TACHYPNOEA [None]
